FAERS Safety Report 5143008-3 (Version None)
Quarter: 2006Q4

REPORT INFORMATION
  Report Type: 
  Country: None (occurrence: None)
  Receive Date: 20061103
  Receipt Date: 20060628
  Transmission Date: 20070319
  Serious: Yes (Hospitalization)
  Sender: FDA-Public Use
  Company Number: US-ELI_LILLY_AND_COMPANY-US200608002816

PATIENT
  Age: 49 Year
  Sex: Female
  Weight: 91.156 kg

DRUGS (5)
  1. ZYPREXA [Suspect]
     Indication: DEPRESSION
     Dosage: UNK, UNK
     Route: 065
     Dates: start: 20000701, end: 20030101
  2. QUETIAPINE [Concomitant]
     Dates: start: 19980101, end: 20010101
  3. RISPERIDONE [Concomitant]
     Dates: start: 19980101, end: 20060801
  4. DEPAKOTE [Concomitant]
     Dates: start: 19980101, end: 20030101
  5. SERTRALINE [Concomitant]
     Dates: start: 19980101, end: 20030101

REACTIONS (4)
  - DIABETES MELLITUS [None]
  - HYPERTENSION [None]
  - METABOLIC DISORDER [None]
  - MYOCARDIAL INFARCTION [None]
